FAERS Safety Report 19376091 (Version 2)
Quarter: 2021Q2

REPORT INFORMATION
  Report Type: Spontaneous
  Country: ES (occurrence: ES)
  Receive Date: 20210528
  Receipt Date: 20210528
  Transmission Date: 20210717
  Serious: Yes (Other)
  Sender: FDA-Public Use
  Company Number: ES-PFIZER INC-2021579032

PATIENT
  Age: 82 Year
  Sex: Female

DRUGS (10)
  1. NITROPLAST [Concomitant]
     Active Substance: NITROGLYCERIN
     Dosage: 10 TRANSDERMAL PATCHES
  2. RAMIPRIL. [Concomitant]
     Active Substance: RAMIPRIL
     Dosage: 5 MG
  3. ORFIDAL [Concomitant]
     Active Substance: LORAZEPAM
     Dosage: 1 MG
  4. CLOPIDOGREL [Concomitant]
     Active Substance: CLOPIDOGREL BISULFATE
     Dosage: UNK
  5. EUTIROX [Concomitant]
     Active Substance: LEVOTHYROXINE SODIUM
     Dosage: 100 UG
  6. BETMIGA [Concomitant]
     Active Substance: MIRABEGRON
     Dosage: UNK
  7. LEXATIN [BROMAZEPAM] [Concomitant]
     Active Substance: BROMAZEPAM
     Dosage: 1.5 MG
  8. AMLODIPINE BESILATE [Suspect]
     Active Substance: AMLODIPINE BESYLATE
     Indication: HYPERTENSION
     Dosage: 10 MG, 1X/DAY
     Route: 048
     Dates: start: 20210504
  9. ATORVASTATIN [Concomitant]
     Active Substance: ATORVASTATIN
     Dosage: UNK
  10. NEXIUM MUPS [ESOMEPRAZOLE MAGNESIUM] [Concomitant]
     Active Substance: ESOMEPRAZOLE MAGNESIUM
     Dosage: 20 MG

REACTIONS (2)
  - Oedema peripheral [Unknown]
  - Urinary retention [Unknown]

NARRATIVE: CASE EVENT DATE: 20210510
